FAERS Safety Report 7406955-5 (Version None)
Quarter: 2011Q2

REPORT INFORMATION
  Report Type: 
  Country: None (occurrence: None)
  Receive Date: 20110411
  Receipt Date: 20110405
  Transmission Date: 20111010
  Serious: Yes (Other)
  Sender: FDA-Public Use
  Company Number: US-PFIZER INC-2011048376

PATIENT
  Age: 19 Year
  Sex: Male

DRUGS (2)
  1. WELLBUTRIN [Concomitant]
  2. GEODON [Suspect]
     Indication: BIPOLAR DISORDER
     Dosage: 40 MG, 2X/DAY

REACTIONS (3)
  - DRUG INEFFECTIVE [None]
  - DYSTONIA [None]
  - WEIGHT INCREASED [None]
